FAERS Safety Report 13859557 (Version 3)
Quarter: 2019Q1

REPORT INFORMATION
  Report Type: Spontaneous
  Country: US (occurrence: US)
  Receive Date: 20170811
  Receipt Date: 20190305
  Transmission Date: 20190417
  Serious: Yes (Other)
  Sender: FDA-Public Use
  Company Number: US-PFIZER INC-2017041037

PATIENT
  Age: 22 Year
  Sex: Male
  Weight: 72.8 kg

DRUGS (2)
  1. BENEFIX [Suspect]
     Active Substance: COAGULATION FACTOR IX RECOMBINANT HUMAN\ISOPROPYL ALCOHOL
     Indication: FACTOR IX DEFICIENCY
     Dosage: 100 UNITS/KG, (6400 UNITS (+/-10%) = 100 UNITS/KG DAILY ON DEMAND FOR BLEEDS)
     Route: 041
  2. BENEFIX [Suspect]
     Active Substance: COAGULATION FACTOR IX RECOMBINANT HUMAN\ISOPROPYL ALCOHOL
     Dosage: 100 UNITS/KG, (7300 UNITS (+/- 10%) = 100 U/KG FOR BLEEDS ON DEMAND
     Route: 041

REACTIONS (3)
  - Pain [Not Recovered/Not Resolved]
  - Joint swelling [Not Recovered/Not Resolved]
  - Haemarthrosis [Recovered/Resolved]

NARRATIVE: CASE EVENT DATE: 20170801
